FAERS Safety Report 8803427 (Version 1)
Quarter: 2012Q4

REPORT INFORMATION
  Report Type: 
  Country: FR (occurrence: FR)
  Receive Date: 20120924
  Receipt Date: 20120924
  Transmission Date: 20130627
  Serious: Yes (Hospitalization)
  Sender: FDA-Public Use
  Company Number: FR-MPIJNJ-2012-06464

PATIENT

DRUGS (8)
  1. VELCADE [Suspect]
     Indication: LEUKAEMIA RECURRENT
     Dosage: 1.3 mg, Cyclic
     Route: 065
     Dates: start: 20120709, end: 20120817
  2. PEGASPARGASE [Suspect]
     Dosage: 1.5 mg, Cyclic
     Route: 065
     Dates: start: 20120709, end: 20120817
  3. DEXAMETHASONE [Suspect]
     Dosage: 5 mg, bid
     Route: 065
     Dates: start: 20120709, end: 20120817
  4. CYTARABINE [Concomitant]
     Indication: LEUKAEMIA RECURRENT
     Dosage: 30 mg, UNK
     Dates: start: 20120709, end: 20120817
  5. HYDROCORTISONE [Concomitant]
     Indication: LEUKAEMIA RECURRENT
     Dosage: 15 mg, UNK
     Dates: start: 20120709, end: 20120817
  6. METHOTREXATE [Concomitant]
     Indication: LEUKAEMIA RECURRENT
     Dosage: 12 mg, UNK
     Dates: start: 20120709, end: 20120817
  7. VINCRISTINE [Concomitant]
     Dosage: 1.5 mg/m2, UNK
     Dates: start: 20120709
  8. VINCRISTINE [Concomitant]
     Dosage: UNK
     Dates: start: 20120817

REACTIONS (2)
  - Hypertriglyceridaemia [Unknown]
  - Off label use [None]
